FAERS Safety Report 21905424 (Version 3)
Quarter: 2023Q1

REPORT INFORMATION
  Report Type: Spontaneous
  Country: US (occurrence: US)
  Receive Date: 20230124
  Receipt Date: 20230309
  Transmission Date: 20230418
  Serious: Yes (Other)
  Sender: FDA-Public Use
  Company Number: US-PFIZER INC-PV202300013831

PATIENT
  Age: 49 Year
  Sex: Female
  Weight: 69.6 kg

DRUGS (7)
  1. FENTANYL CITRATE [Suspect]
     Active Substance: FENTANYL CITRATE
     Indication: Pain
     Dosage: 50 UG
     Route: 042
     Dates: start: 20230106, end: 20230106
  2. FENTANYL CITRATE [Suspect]
     Active Substance: FENTANYL CITRATE
     Dosage: 50 UG
     Route: 042
     Dates: start: 20230106, end: 20230106
  3. ONDANSETRON [Suspect]
     Active Substance: ONDANSETRON
     Indication: Nausea
     Dosage: 4 MG (ONE TIME DOSE FOR ANESTHESIA)
     Route: 042
     Dates: start: 20230106, end: 20230106
  4. MIDAZOLAM HYDROCHLORIDE [Suspect]
     Active Substance: MIDAZOLAM HYDROCHLORIDE
     Indication: Anxiety
     Dosage: 2 MG (ONE TIME DOSE FOR ANESTHESIA)
     Route: 042
     Dates: start: 20230106, end: 20230106
  5. DECADRON [Suspect]
     Active Substance: DEXAMETHASONE
     Indication: Nausea
     Dosage: 4 MG (ONE TIME DOSE FOR ANESTHESIA)
     Route: 042
     Dates: start: 20230106, end: 20230106
  6. DIPRIVAN [Suspect]
     Active Substance: PROPOFOL
     Indication: Sedation
     Dosage: 20 ML
     Route: 042
     Dates: start: 20230106
  7. ESTRADIOL [Concomitant]
     Active Substance: ESTRADIOL
     Dosage: UNK

REACTIONS (3)
  - Urticaria [Recovered/Resolved]
  - Hypersensitivity [Recovered/Resolved]
  - Throat irritation [Recovered/Resolved]

NARRATIVE: CASE EVENT DATE: 20230106
